FAERS Safety Report 10188056 (Version 1)
Quarter: 2014Q2

REPORT INFORMATION
  Report Type: Spontaneous
  Country: US (occurrence: US)
  Receive Date: 20140522
  Receipt Date: 20140522
  Transmission Date: 20141212
  Serious: No
  Sender: FDA-Public Use
  Company Number: US-SA-2013SA106259

PATIENT
  Age: 88 Year
  Sex: Male
  Weight: 99.79 kg

DRUGS (4)
  1. LANTUS [Suspect]
     Dosage: DOSE:23 UNIT(S)
     Route: 051
  2. LANTUS SOLOSTAR [Suspect]
     Route: 051
  3. HUMALOG [Suspect]
     Dosage: DOSE:18 UNIT(S)
     Route: 065
  4. SOLOSTAR [Concomitant]

REACTIONS (3)
  - Blood glucose increased [Unknown]
  - Expired product administered [Unknown]
  - Drug ineffective [Unknown]
